FAERS Safety Report 9331180 (Version 1)
Quarter: 2013Q2

REPORT INFORMATION
  Report Type: Spontaneous
  Country: ES (occurrence: ES)
  Receive Date: 20130605
  Receipt Date: 20130605
  Transmission Date: 20140414
  Serious: Yes (Death)
  Sender: FDA-Public Use
  Company Number: ES-JNJFOC-20130515380

PATIENT
  Sex: 0

DRUGS (29)
  1. DOXORUBICIN [Suspect]
     Indication: BURKITT^S LEUKAEMIA
     Dosage: 15 MINUTES, CYCLE B DAYS 32-33
     Route: 042
  2. DOXORUBICIN [Suspect]
     Indication: BURKITT^S LYMPHOMA
     Dosage: 15 MINUTES, CYCLE B DAYS 32-33
     Route: 042
  3. CYCLOPHOSPHAMIDE [Suspect]
     Indication: BURKITT^S LEUKAEMIA
     Dosage: OVER 1 HOUR, PREPHASE DAY 1-5, CYCLE B DAY 29-33
     Route: 042
  4. CYCLOPHOSPHAMIDE [Suspect]
     Indication: BURKITT^S LYMPHOMA
     Dosage: OVER 1 HOUR, PREPHASE DAY 1-5, CYCLE B DAY 29-33
     Route: 042
  5. PREDNISONE [Suspect]
     Indication: BURKITT^S LEUKAEMIA
     Dosage: DAYS 1-5
     Route: 040
  6. PREDNISONE [Suspect]
     Indication: BURKITT^S LYMPHOMA
     Dosage: DAYS 1-5
     Route: 040
  7. RITUXIMAB [Suspect]
     Indication: BURKITT^S LEUKAEMIA
     Dosage: OVER 4 HOURS, CYCLE A DAY 7, CYCLE B DAY 28, CYCLE C DAY 49
     Route: 042
  8. RITUXIMAB [Suspect]
     Indication: BURKITT^S LYMPHOMA
     Dosage: OVER 4 HOURS, CYCLE A DAY 7, CYCLE B DAY 28, CYCLE C DAY 49
     Route: 042
  9. VINCRISTINE [Suspect]
     Indication: BURKITT^S LEUKAEMIA
     Dosage: CYCLE A DAY 8, CYCLE B DAY 29
     Route: 040
  10. VINCRISTINE [Suspect]
     Indication: BURKITT^S LYMPHOMA
     Dosage: CYCLE A DAY 8, CYCLE B DAY 29
     Route: 040
  11. METHOTREXATE [Suspect]
     Indication: BURKITT^S LEUKAEMIA
     Dosage: OVER 24 HOURS CYCLE A DAY 8, CYCLE B DAY 29, CYCLE C DAY 50
     Route: 042
  12. METHOTREXATE [Suspect]
     Indication: BURKITT^S LYMPHOMA
     Dosage: OVER 24 HOURS CYCLE A DAY 8, CYCLE B DAY 29, CYCLE C DAY 50
     Route: 042
  13. IPHOSPHAMIDE [Suspect]
     Indication: BURKITT^S LEUKAEMIA
     Dosage: OVER 1 HOUR CYCLE A DAY 8-12
     Route: 042
  14. IPHOSPHAMIDE [Suspect]
     Indication: BURKITT^S LYMPHOMA
     Dosage: OVER 1 HOUR CYCLE A DAY 8-12
     Route: 042
  15. DEXAMETHASONE [Suspect]
     Indication: BURKITT^S LEUKAEMIA
     Dosage: CYCLE A DAY 8-12, CYCLE B DAYS 29-33, CYCLE C DAYS 50-54
     Route: 040
  16. DEXAMETHASONE [Suspect]
     Indication: BURKITT^S LYMPHOMA
     Dosage: CYCLE A DAY 8-12, CYCLE B DAYS 29-33, CYCLE C DAYS 50-54
     Route: 040
  17. TENIPOSIDE [Suspect]
     Indication: BURKITT^S LEUKAEMIA
     Dosage: CYCLE A DAY 11-12
     Route: 042
  18. TENIPOSIDE [Suspect]
     Indication: BURKITT^S LYMPHOMA
     Dosage: CYCLE A DAY 11-12
     Route: 042
  19. CYTARABINE [Suspect]
     Indication: BURKITT^S LEUKAEMIA
     Dosage: CYCLE A DAY 11-12
     Route: 042
  20. CYTARABINE [Suspect]
     Indication: BURKITT^S LEUKAEMIA
     Dosage: CYCLE A DAY 11-12
     Route: 042
  21. CYTARABINE [Suspect]
     Indication: BURKITT^S LYMPHOMA
     Dosage: CYCLE A DAY 11-12
     Route: 042
  22. CYTARABINE [Suspect]
     Indication: BURKITT^S LYMPHOMA
     Dosage: CYCLE A DAY 11-12
     Route: 042
  23. VINDESINE [Suspect]
     Indication: BURKITT^S LEUKAEMIA
     Dosage: MAXIMUM 5 MG, CYCLE C DAY 50
     Route: 040
  24. VINDESINE [Suspect]
     Indication: BURKITT^S LYMPHOMA
     Dosage: MAXIMUM 5 MG, CYCLE C DAY 50
     Route: 040
  25. METHOTREXATE [Suspect]
     Indication: PROPHYLAXIS
     Route: 037
  26. CYTARABINE [Suspect]
     Indication: PROPHYLAXIS
     Route: 065
  27. DEXAMETHASONE [Suspect]
     Indication: PROPHYLAXIS
     Route: 065
  28. ETOPOSIDE [Suspect]
     Indication: BURKITT^S LEUKAEMIA
     Dosage: CYCLE C DAY 53-54
     Route: 042
  29. ETOPOSIDE [Suspect]
     Indication: BURKITT^S LYMPHOMA
     Dosage: CYCLE C DAY 53-54
     Route: 042

REACTIONS (1)
  - Pneumonia [Fatal]
